FAERS Safety Report 18485507 (Version 3)
Quarter: 2021Q2

REPORT INFORMATION
  Report Type: Spontaneous
  Country: US (occurrence: US)
  Receive Date: 20201110
  Receipt Date: 20210507
  Transmission Date: 20210717
  Serious: Yes (Hospitalization)
  Sender: FDA-Public Use
  Company Number: US-PFIZER INC-2020431636

PATIENT
  Age: 43 Year
  Sex: Female

DRUGS (3)
  1. METRONIDAZOLE. [Suspect]
     Active Substance: METRONIDAZOLE
     Dosage: 30 MG
     Route: 042
  2. METRONIDAZOLE. [Suspect]
     Active Substance: METRONIDAZOLE
     Indication: IMMUNE TOLERANCE INDUCTION
     Dosage: 0.5 MG, UNK
     Route: 042
  3. METRONIDAZOLE. [Suspect]
     Active Substance: METRONIDAZOLE
     Indication: TRICHOMONIASIS
     Dosage: 500 MG, 2X/DAY
     Route: 048

REACTIONS (8)
  - Allergic reaction to excipient [Unknown]
  - Urticaria [Unknown]
  - Salivary hypersecretion [Unknown]
  - Pruritus [Unknown]
  - Vomiting [Unknown]
  - Skin burning sensation [Unknown]
  - Feeling hot [Unknown]
  - Dyspnoea [Unknown]
